FAERS Safety Report 16252392 (Version 2)
Quarter: 2019Q2

REPORT INFORMATION
  Report Type: Spontaneous
  Country: DE (occurrence: DE)
  Receive Date: 20190429
  Receipt Date: 20190502
  Transmission Date: 20190711
  Serious: Yes (Hospitalization, Other)
  Sender: FDA-Public Use
  Company Number: DE-PFIZER INC-2019181388

PATIENT
  Sex: Female

DRUGS (14)
  1. DICLO [DICLOFENAC SODIUM] [Suspect]
     Active Substance: DICLOFENAC SODIUM
     Dosage: UNK UNK, PRN
     Route: 065
  2. CANDESARTAN CILEXETIL. [Suspect]
     Active Substance: CANDESARTAN CILEXETIL
     Dosage: 4 MG, 1X/DAY
     Route: 048
  3. ATORVASTATIN CALCIUM. [Suspect]
     Active Substance: ATORVASTATIN CALCIUM
     Dosage: 40 MG, 1X/DAY
     Route: 065
  4. ASPIRIN. [Suspect]
     Active Substance: ASPIRIN
     Dosage: 100 MILLIGRAM, QD
     Route: 065
  5. METOHEXAL [METOPROLOL TARTRATE] [Suspect]
     Active Substance: METOPROLOL TARTRATE
     Dosage: 23.75 MILLIGRAM, QD
     Route: 065
  6. REVITEN [Suspect]
     Active Substance: TRIAMTERENE
     Dosage: UNK UNK, QD
     Route: 065
  7. PANTOPRAZOLE [Suspect]
     Active Substance: PANTOPRAZOLE
     Dosage: 40 MG, 1X/DAY
     Route: 065
  8. HYDROCHLOROTHIAZIDE. [Suspect]
     Active Substance: HYDROCHLOROTHIAZIDE
     Dosage: 12.5 MILLIGRAM, QD, NON-AZ CASE
     Route: 048
  9. PREDNISOLONE. [Suspect]
     Active Substance: PREDNISOLONE
     Dosage: 3 DF, QD
     Route: 065
  10. TOREM [TORASEMIDE] [Suspect]
     Active Substance: TORSEMIDE
     Dosage: 200 MILLIGRAM, QD
     Route: 065
  11. SPIRONOLACTONE. [Suspect]
     Active Substance: SPIRONOLACTONE
     Dosage: 50 MILLIGRAM, QD
     Route: 065
  12. BONDIOL [Suspect]
     Active Substance: ALFACALCIDOL
     Dosage: 0.25UG/INHAL, QD
     Route: 065
  13. IMODIUM [Suspect]
     Active Substance: LOPERAMIDE HYDROCHLORIDE
     Dosage: UNK UNK, PRN
     Route: 065
  14. LAMOTRIGINE. [Suspect]
     Active Substance: LAMOTRIGINE
     Dosage: 100 MG, 2X/DAY
     Route: 065

REACTIONS (13)
  - Waist circumference increased [Recovering/Resolving]
  - Hypotension [Unknown]
  - Dyspnoea exertional [Recovering/Resolving]
  - Hypokalaemia [Recovered/Resolved]
  - Peripheral swelling [Recovering/Resolving]
  - Soft tissue infection [Recovering/Resolving]
  - Oedema peripheral [Recovering/Resolving]
  - Urinary tract infection [Unknown]
  - Leukocytosis [Unknown]
  - Cardiac failure [Recovering/Resolving]
  - End stage renal disease [Unknown]
  - N-terminal prohormone brain natriuretic peptide increased [Unknown]
  - Pain in extremity [Recovering/Resolving]

NARRATIVE: CASE EVENT DATE: 20181029
